FAERS Safety Report 5331447-7 (Version None)
Quarter: 2007Q1

REPORT INFORMATION
  Report Type: 
  Country: None (occurrence: None)
  Receive Date: 20070306
  Receipt Date: 20051205
  Transmission Date: 20070707
  Serious: Yes (Hospitalization)
  Sender: FDA-Public Use
  Company Number: A03200504087

PATIENT
  Age: 75 Year
  Sex: Male
  Weight: 82.5 kg

DRUGS (7)
  1. PLAVIX [Suspect]
     Indication: STENT PLACEMENT
     Dosage: 75 MG QD - ORAL
     Route: 048
     Dates: start: 20051010
  2. PREDNISONE TAB [Concomitant]
  3. ISOSORBIDE [Concomitant]
  4. SIMVASTATIN [Concomitant]
  5. METOPROLOL SUCCINATE [Concomitant]
  6. MULTI-VITAMIN [Concomitant]
  7. FERROUS SULFATE [Concomitant]

REACTIONS (1)
  - NEUTROPENIA [None]
